FAERS Safety Report 6413773-3 (Version None)
Quarter: 2009Q4

REPORT INFORMATION
  Report Type: 
  Country: None (occurrence: None)
  Receive Date: 20091026
  Receipt Date: 20090918
  Transmission Date: 20100525
  Serious: No
  Sender: FDA-Public Use
  Company Number: US-BAYER-200936977NA

PATIENT
  Age: 18 Year
  Sex: Female

DRUGS (2)
  1. YAZ [Suspect]
     Indication: CONTRACEPTION
     Route: 048
     Dates: start: 20090501, end: 20090801
  2. YAZ [Suspect]
     Route: 048
     Dates: start: 20091001

REACTIONS (2)
  - MENORRHAGIA [None]
  - MUSCLE SPASMS [None]
